FAERS Safety Report 19233609 (Version 1)
Quarter: 2021Q2

REPORT INFORMATION
  Report Type: Spontaneous
  Country: AE (occurrence: AE)
  Receive Date: 20210507
  Receipt Date: 20210507
  Transmission Date: 20210717
  Serious: Yes (Other)
  Sender: FDA-Public Use
  Company Number: AE-CELGENEUS-ARE-20210407617

PATIENT
  Age: 46 Year
  Sex: Male

DRUGS (1)
  1. REVLIMID [Suspect]
     Active Substance: LENALIDOMIDE
     Indication: PLASMA CELL MYELOMA
     Route: 048
     Dates: start: 20210107

REACTIONS (7)
  - Unevaluable event [Unknown]
  - Agranulocytosis [Unknown]
  - Transaminases increased [Unknown]
  - Vomiting [Unknown]
  - Hypocalcaemia [Unknown]
  - Nausea [Unknown]
  - Diabetes mellitus [Unknown]

NARRATIVE: CASE EVENT DATE: 20210429
